FAERS Safety Report 16989262 (Version 1)
Quarter: 2019Q4

REPORT INFORMATION
  Report Type: Spontaneous
  Country: US (occurrence: US)
  Receive Date: 20191101
  Receipt Date: 20191101
  Transmission Date: 20200122
  Serious: No
  Sender: FDA-Public Use
  Company Number: None

PATIENT
  Sex: Female

DRUGS (1)
  1. METOPROLOL SUCCINATE 50 MG - 1 1/2 TAB DAILY [Suspect]
     Active Substance: METOPROLOL SUCCINATE

REACTIONS (1)
  - Palpitations [None]
